FAERS Safety Report 7355152-0 (Version None)
Quarter: 2011Q1

REPORT INFORMATION
  Report Type: 
  Country: None (occurrence: None)
  Receive Date: 20110311
  Receipt Date: 20110311
  Transmission Date: 20110831
  Serious: Yes (Death, Other)
  Sender: FDA-Public Use
  Company Number: None

PATIENT
  Age: 70 Year
  Sex: Female
  Weight: 84.8226 kg

DRUGS (1)
  1. RECLAST [Suspect]
     Indication: MUSCULOSKELETAL DISCOMFORT
     Dosage: 5 MG 1 TIME
     Dates: start: 20101021

REACTIONS (4)
  - OEDEMA PERIPHERAL [None]
  - TOOTH DISORDER [None]
  - MUSCLE SPASMS [None]
  - MOVEMENT DISORDER [None]
